FAERS Safety Report 23858157 (Version 1)
Quarter: 2024Q2

REPORT INFORMATION
  Report Type: Spontaneous
  Country: US (occurrence: None)
  Receive Date: 20240514
  Receipt Date: 20240514
  Transmission Date: 20240715
  Serious: Yes (Death)
  Sender: FDA-Public Use
  Company Number: None

PATIENT
  Age: 69 Year
  Sex: Female
  Weight: 45.36 kg

DRUGS (11)
  1. PROLIA [Suspect]
     Active Substance: DENOSUMAB
     Indication: Osteoporosis
     Dosage: OTHER FREQUENCY : EVERY 6 MONTHS;?
     Route: 058
     Dates: start: 20220517, end: 20231214
  2. SPIRONOLACTONE [Concomitant]
     Active Substance: SPIRONOLACTONE
  3. XIFAXAN [Concomitant]
     Active Substance: RIFAXIMIN
  4. CALCIUM W/D [Concomitant]
  5. DIAZEPAM [Concomitant]
     Active Substance: DIAZEPAM
  6. FERROUS SULFATE [Concomitant]
     Active Substance: FERROUS SULFATE
  7. FUROSEMIDE [Concomitant]
     Active Substance: FUROSEMIDE
  8. GRALISE (GABAPENTIN ER) [Concomitant]
  9. LACTULOSE [Concomitant]
     Active Substance: LACTULOSE
  10. OMEPRAZOLE [Concomitant]
     Active Substance: DONEPEZIL HYDROCHLORIDE\OMEPRAZOLE\OMEPRAZOLE MAGNESIUM
  11. OXYCODONE IMMEDIATE REL [Concomitant]

REACTIONS (1)
  - Death [None]

NARRATIVE: CASE EVENT DATE: 20231214
